FAERS Safety Report 4301969-6 (Version None)
Quarter: 2004Q1

REPORT INFORMATION
  Report Type: 
  Country: None (occurrence: None)
  Receive Date: 20040220
  Receipt Date: 20040213
  Transmission Date: 20041129
  Serious: No
  Sender: FDA-Public Use
  Company Number: 2003UW16728

PATIENT
  Age: 13 Year
  Sex: Male
  Weight: 74.8435 kg

DRUGS (2)
  1. SEROQUEL [Suspect]
     Indication: AGITATION
     Dosage: 300 MG HS PO
     Route: 048
     Dates: start: 20040112, end: 20040113
  2. SEROQUEL [Suspect]
     Indication: MOOD SWINGS
     Dosage: 300 MG HS PO
     Route: 048
     Dates: start: 20040112, end: 20040113

REACTIONS (9)
  - DIZZINESS [None]
  - DYSTONIA [None]
  - MUSCULOSKELETAL STIFFNESS [None]
  - NUCHAL RIGIDITY [None]
  - PHARYNGOLARYNGEAL PAIN [None]
  - PYREXIA [None]
  - SALIVARY HYPERSECRETION [None]
  - STREPTOCOCCAL INFECTION [None]
  - SWOLLEN TONGUE [None]
